FAERS Safety Report 5096201-2 (Version None)
Quarter: 2006Q3

REPORT INFORMATION
  Report Type: 
  Country: None (occurrence: None)
  Receive Date: 20060905
  Receipt Date: 20060810
  Transmission Date: 20061208
  Serious: Yes (Hospitalization)
  Sender: FDA-Public Use
  Company Number: JP-ROCHE-459415

PATIENT
  Age: 54 Year
  Sex: Female
  Weight: 54 kg

DRUGS (6)
  1. PEGASYS [Suspect]
     Route: 058
     Dates: start: 20060627, end: 20060802
  2. MYONAL [Suspect]
     Route: 048
     Dates: start: 20060609, end: 20060811
  3. LOXONIN [Concomitant]
  4. MUCOSTA [Concomitant]
     Route: 048
     Dates: start: 20060513
  5. ODRIC [Concomitant]
     Route: 048
     Dates: start: 20060530
  6. LOXOPROFEN SODIUM [Concomitant]
     Route: 048
     Dates: start: 20060719

REACTIONS (8)
  - DRUG ERUPTION [None]
  - EOSINOPHIL PERCENTAGE INCREASED [None]
  - GENERALISED OEDEMA [None]
  - PHOTOSENSITIVITY REACTION [None]
  - PRURITUS [None]
  - RASH [None]
  - STOMATITIS [None]
  - WHITE BLOOD CELL COUNT INCREASED [None]
